FAERS Safety Report 14602264 (Version 1)
Quarter: 2018Q1

REPORT INFORMATION
  Report Type: Report from Study
  Country: US (occurrence: US)
  Receive Date: 20180306
  Receipt Date: 20180306
  Transmission Date: 20180509
  Serious: Yes (Hospitalization, Other)
  Sender: FDA-Public Use
  Company Number: US-GILEAD-2018-0324012

PATIENT
  Age: 56 Year
  Sex: Female

DRUGS (3)
  1. AMBRISENTAN [Suspect]
     Active Substance: AMBRISENTAN
     Indication: PRODUCT USED FOR UNKNOWN INDICATION
     Dosage: 10 MG, QD
     Route: 065
     Dates: start: 20171109
  2. ADCIRCA [Concomitant]
     Active Substance: TADALAFIL
  3. AMBRISENTAN [Suspect]
     Active Substance: AMBRISENTAN
     Dosage: 10 MG, BID
     Route: 065

REACTIONS (8)
  - Headache [Unknown]
  - Transfusion [Unknown]
  - Chest discomfort [Not Recovered/Not Resolved]
  - Tinnitus [Not Recovered/Not Resolved]
  - General physical health deterioration [Not Recovered/Not Resolved]
  - Pharyngeal oedema [Unknown]
  - Off label use [Recovered/Resolved]
  - Peripheral swelling [Not Recovered/Not Resolved]
